FAERS Safety Report 5627634-0 (Version None)
Quarter: 2008Q1

REPORT INFORMATION
  Report Type: 
  Country: None (occurrence: None)
  Receive Date: 20080214
  Receipt Date: 20080214
  Transmission Date: 20080703
  Serious: Yes (Hospitalization)
  Sender: FDA-Public Use
  Company Number: None

PATIENT
  Age: 34 Year
  Sex: Male
  Weight: 77.5651 kg

DRUGS (2)
  1. TRAMADOL HCL [Suspect]
     Indication: BACK PAIN
     Dosage: 50 MG 2 BAB Q 4-6 HR PO
     Route: 048
     Dates: start: 20050516, end: 20080211
  2. TRAMADOL HCL [Suspect]
     Indication: CHEST PAIN
     Dosage: 50 MG 2 BAB Q 4-6 HR PO
     Route: 048
     Dates: start: 20050516, end: 20080211

REACTIONS (4)
  - BLOOD PRESSURE INCREASED [None]
  - HEART RATE INCREASED [None]
  - HYPOVOLAEMIC SHOCK [None]
  - WITHDRAWAL SYNDROME [None]
